FAERS Safety Report 10505773 (Version 1)
Quarter: 2014Q4

REPORT INFORMATION
  Report Type: Spontaneous
  Country: CA (occurrence: CA)
  Receive Date: 20141008
  Receipt Date: 20141008
  Transmission Date: 20150528
  Serious: Yes (Other)
  Sender: FDA-Public Use
  Company Number: PHHY2014CA128528

PATIENT
  Age: 82 Year
  Sex: Male

DRUGS (18)
  1. AMIODARONE [Suspect]
     Active Substance: AMIODARONE
     Dosage: 1050 MG, UNK
     Route: 042
  2. ASPIRIN. [Concomitant]
     Active Substance: ASPIRIN
  3. TAMSULOSIN [Concomitant]
     Active Substance: TAMSULOSIN
  4. RALTEGRAVIR [Concomitant]
     Active Substance: RALTEGRAVIR
     Dosage: 400 MG, BID
  5. AMIODARONE [Interacting]
     Active Substance: AMIODARONE
     Dosage: 12000 MG, UNK
  6. AMIODARONE [Interacting]
     Active Substance: AMIODARONE
     Dosage: 200 MG, QD
     Route: 048
  7. ATAZANAVIR [Interacting]
     Active Substance: ATAZANAVIR
     Dosage: 300 MG, QD
  8. LAMIVUDINE AND ZIDOVUDINE [Concomitant]
     Active Substance: LAMIVUDINE\ZIDOVUDINE
     Dosage: 1 DF, BID
  9. RITONAVIR. [Concomitant]
     Active Substance: RITONAVIR
     Dosage: 100 MG, QD
  10. ATAZANAVIR [Interacting]
     Active Substance: ATAZANAVIR
     Dosage: 400 MG, DAILY
  11. SULFAMETHOXAZOLE-TRIMETHOPRIM (SMZ) [Concomitant]
     Active Substance: SULFAMETHOXAZOLE\TRIMETHOPRIM
  12. ROSUVASTATIN [Concomitant]
     Active Substance: ROSUVASTATIN
  13. TENOFOVIR [Concomitant]
     Active Substance: TENOFOVIR
     Dosage: 300 MG, QD
  14. AMIODARONE [Interacting]
     Active Substance: AMIODARONE
     Dosage: 100 MG, DAILY
  15. ATENOLOL. [Concomitant]
     Active Substance: ATENOLOL
  16. ENALAPRIL [Concomitant]
     Active Substance: ENALAPRIL
  17. FINASTERIDE. [Concomitant]
     Active Substance: FINASTERIDE
  18. ABACAVIR W/LAMIVUDINE [Concomitant]
     Active Substance: ABACAVIR\LAMIVUDINE
     Dosage: 1 DF, QD

REACTIONS (3)
  - Drug level increased [Unknown]
  - Blood creatinine increased [Unknown]
  - Drug interaction [Unknown]
